FAERS Safety Report 6867580-8 (Version None)
Quarter: 2010Q3

REPORT INFORMATION
  Report Type: 
  Country: None (occurrence: None)
  Receive Date: 20100722
  Receipt Date: 20100416
  Transmission Date: 20110219
  Serious: No
  Sender: FDA-Public Use
  Company Number: US-BAUSCH-2010BL001980

PATIENT
  Age: 70 Year
  Sex: Female

DRUGS (8)
  1. SOOTHE XP [Suspect]
     Indication: DRY EYE
     Route: 047
     Dates: start: 20100405
  2. SOOTHE XP [Suspect]
     Indication: CORNEAL ABRASION
     Route: 047
     Dates: start: 20100405
  3. VIGAMOX [Suspect]
     Indication: DRY EYE
     Route: 047
     Dates: start: 20100405, end: 20100407
  4. VIGAMOX [Suspect]
     Indication: CORNEAL ABRASION
     Route: 047
     Dates: start: 20100405, end: 20100407
  5. TOBRAMYCIN AND DEXAMETHASONE [Suspect]
     Indication: DRY EYE
     Route: 047
     Dates: start: 20100409
  6. TOBRAMYCIN AND DEXAMETHASONE [Suspect]
     Indication: CORNEAL ABRASION
     Route: 047
     Dates: start: 20100409
  7. SYNTHROID [Concomitant]
     Indication: THYROID DISORDER
     Route: 048
  8. ATENOLOL [Concomitant]
     Indication: HYPERTENSION
     Route: 048

REACTIONS (1)
  - HYPERSENSITIVITY [None]
